FAERS Safety Report 7999930 (Version 2)
Quarter: 2014Q1

REPORT INFORMATION
  Report Type: Report from Study
  Country: GB (occurrence: GB)
  Receive Date: 20110621
  Receipt Date: 20140106
  Transmission Date: 20141002
  Serious: Yes (Death, Other)
  Sender: FDA-Public Use
  Company Number: GB-CELGENEUS-167-21880-11061373

PATIENT
  Sex: 0

DRUGS (11)
  1. REVLIMID [Suspect]
     Indication: MYELODYSPLASTIC SYNDROME
     Dosage: 10 MILLIGRAM
     Route: 048
  2. REVLIMID [Suspect]
     Indication: ACUTE MYELOID LEUKAEMIA
  3. CYTARABINE [Concomitant]
     Indication: MYELODYSPLASTIC SYNDROME
     Dosage: 200 MILLIGRAM/SQ. METER
     Route: 041
  4. CYTARABINE [Concomitant]
     Indication: ACUTE MYELOID LEUKAEMIA
  5. DAUNORUBICIN [Concomitant]
     Indication: MYELODYSPLASTIC SYNDROME
     Dosage: 50 MILLIGRAM/SQ. METER
     Route: 041
  6. DAUNORUBICIN [Concomitant]
     Indication: ACUTE MYELOID LEUKAEMIA
  7. ETOPOSID [Concomitant]
     Indication: MYELODYSPLASTIC SYNDROME
     Dosage: 100 MILLIGRAM/SQ. METER
     Route: 065
  8. ETOPOSID [Concomitant]
     Indication: ACUTE MYELOID LEUKAEMIA
  9. RED BLOOD CELLS [Concomitant]
     Indication: PRODUCT USED FOR UNKNOWN INDICATION
     Route: 065
  10. PLATELETS [Concomitant]
     Indication: PRODUCT USED FOR UNKNOWN INDICATION
     Route: 065
  11. ANTIBIOTICS [Concomitant]
     Indication: PRODUCT USED FOR UNKNOWN INDICATION
     Route: 041

REACTIONS (19)
  - Neutropenic infection [Fatal]
  - Death [Fatal]
  - Neutropenic sepsis [Unknown]
  - Thrombocytopenia [Unknown]
  - Alanine aminotransferase increased [Unknown]
  - Aspartate aminotransferase increased [Unknown]
  - Haematotoxicity [Unknown]
  - Embolism venous [Unknown]
  - Neutropenia [Unknown]
  - Mucosal inflammation [Unknown]
  - Blood bilirubin abnormal [Unknown]
  - No therapeutic response [Unknown]
  - Diarrhoea [Unknown]
  - Fatigue [Unknown]
  - Nausea [Unknown]
  - Peripheral motor neuropathy [Unknown]
  - Peripheral sensory neuropathy [Unknown]
  - Vomiting [Unknown]
  - Disease progression [Unknown]
